FAERS Safety Report 18022236 (Version 1)
Quarter: 2020Q3

REPORT INFORMATION
  Report Type: Spontaneous
  Country: GB (occurrence: GB)
  Receive Date: 20200714
  Receipt Date: 20200714
  Transmission Date: 20201103
  Serious: Yes (Hospitalization)
  Sender: FDA-Public Use
  Company Number: GB-BAYER-2020-135803

PATIENT
  Sex: Male

DRUGS (1)
  1. RADIUM?223 DICHLORIDE [Suspect]
     Active Substance: RADIUM RA-223 DICHLORIDE
     Indication: PROSTATE CANCER METASTATIC
     Dosage: 4 CYCLES

REACTIONS (1)
  - Spinal cord compression [Not Recovered/Not Resolved]
